FAERS Safety Report 8264168 (Version 4)
Quarter: 2013Q1

REPORT INFORMATION
  Report Type: Report from Study
  Country: GB (occurrence: GB)
  Receive Date: 20111128
  Receipt Date: 20130103
  Transmission Date: 20140127
  Serious: Yes (Hospitalization)
  Sender: FDA-Public Use
  Company Number: GB-CELGENEUS-167-C5013-11102269

PATIENT
  Age: 70 Year
  Sex: Female
  Weight: 64.1 kg

DRUGS (10)
  1. PLACEBO [Suspect]
     Indication: MYELODYSPLASTIC SYNDROME
     Dosage: 10 MILLIGRAM
     Route: 048
     Dates: start: 20110818
  2. PLACEBO [Suspect]
     Dosage: 5 MILLIGRAM
     Route: 048
     Dates: start: 20110914, end: 20111011
  3. PLACEBO [Suspect]
     Dosage: 2.5 MILLIGRAM
     Route: 048
     Dates: start: 20111104, end: 20111112
  4. DERMOVATE [Concomitant]
     Indication: RASH
     Dosage: 100 GRAM
     Route: 061
     Dates: start: 20110825
  5. DIPROBASE [Concomitant]
     Indication: RASH
     Route: 061
     Dates: start: 20110825
  6. ASPIRINE [Concomitant]
     Indication: AORTIC STENOSIS
     Dosage: 75 MILLIGRAM
     Route: 048
  7. SIMVASTATINE [Concomitant]
     Indication: BLOOD CHOLESTEROL INCREASED
     Dosage: 20 MILLIGRAM
     Route: 048
  8. METFORMIN [Concomitant]
     Indication: TYPE 2 DIABETES MELLITUS
     Dosage: 1500 MILLIGRAM
     Route: 048
     Dates: start: 2001
  9. NOVOMIX INSULIN [Concomitant]
     Indication: DIABETES MELLITUS
     Dosage: 26 IU (INTERNATIONAL UNIT)
     Route: 058
     Dates: start: 2001
  10. NOVOMIX INSULIN [Concomitant]
     Dosage: 10 IU (INTERNATIONAL UNIT)
     Route: 058
     Dates: start: 2001

REACTIONS (3)
  - Haematemesis [Recovered/Resolved]
  - Haemoglobin decreased [Recovered/Resolved with Sequelae]
  - Myocardial infarction [Recovered/Resolved]
